FAERS Safety Report 6552310-X (Version None)
Quarter: 2010Q1

REPORT INFORMATION
  Report Type: 
  Country: None (occurrence: None)
  Receive Date: 20100126
  Receipt Date: 20100119
  Transmission Date: 20100710
  Serious: No
  Sender: FDA-Public Use
  Company Number: US-AMGEN-KDL374225

PATIENT
  Sex: Male
  Weight: 81.7 kg

DRUGS (3)
  1. PROCRIT [Suspect]
     Indication: ANAEMIA
     Route: 058
     Dates: start: 20090602
  2. PEGASYS [Concomitant]
     Route: 058
  3. COPEGUS [Concomitant]

REACTIONS (1)
  - HAEMOGLOBIN DECREASED [None]
